FAERS Safety Report 6896843-5 (Version None)
Quarter: 2010Q3

REPORT INFORMATION
  Report Type: 
  Country: None (occurrence: None)
  Receive Date: 20100802
  Receipt Date: 20070301
  Transmission Date: 20110219
  Serious: No
  Sender: FDA-Public Use
  Company Number: US-PFIZER INC-2007016798

PATIENT
  Sex: Female
  Weight: 79.4 kg

DRUGS (4)
  1. LYRICA [Suspect]
     Indication: NEUROPATHY PERIPHERAL
     Dates: start: 20070227
  2. VALSARTAN [Concomitant]
  3. ZOCOR [Concomitant]
  4. FOSAMAX [Concomitant]

REACTIONS (1)
  - DIZZINESS [None]
